FAERS Safety Report 9087929 (Version 2)
Quarter: 2013Q1

REPORT INFORMATION
  Report Type: Spontaneous
  Country: US (occurrence: US)
  Receive Date: 20130207
  Receipt Date: 20130207
  Transmission Date: 20140127
  Serious: Yes (Hospitalization, Other)
  Sender: FDA-Public Use
  Company Number: US-009507513-2010SP006045

PATIENT
  Sex: Female
  Weight: 58.97 kg

DRUGS (3)
  1. NUVARING [Suspect]
     Indication: CONTRACEPTION
     Dates: start: 20030922, end: 20060425
  2. ZOLOFT [Concomitant]
     Dosage: ON ZOLOFT THE LAST 2 YEARS
  3. VITAMINS (UNSPECIFIED) [Concomitant]

REACTIONS (7)
  - Human papilloma virus test positive [Unknown]
  - Cervical dysplasia [Unknown]
  - Pelvic pain [Unknown]
  - Smear cervix abnormal [Unknown]
  - Breast cyst [Unknown]
  - Deep vein thrombosis [Recovered/Resolved]
  - Hypercoagulation [Unknown]
